FAERS Safety Report 13762675 (Version 1)
Quarter: 2017Q3

REPORT INFORMATION
  Report Type: Spontaneous
  Country: CH (occurrence: CH)
  Receive Date: 20170718
  Receipt Date: 20170718
  Transmission Date: 20171127
  Serious: Yes (Hospitalization)
  Sender: FDA-Public Use
  Company Number: PHHY2017CH103699

PATIENT
  Sex: Male

DRUGS (2)
  1. RITALIN [Suspect]
     Active Substance: METHYLPHENIDATE HYDROCHLORIDE
     Indication: PRODUCT USED FOR UNKNOWN INDICATION
     Route: 065
  2. KETALGIN NOS [Concomitant]
     Active Substance: KETOROLAC TROMETHAMINE OR METHADONE
     Indication: PRODUCT USED FOR UNKNOWN INDICATION
     Route: 065

REACTIONS (5)
  - Schizophrenia [Unknown]
  - Prescription drug used without a prescription [Unknown]
  - Mental disorder [Unknown]
  - Drug abuse [Unknown]
  - Psychotic disorder [Unknown]
